FAERS Safety Report 9128888 (Version 1)
Quarter: 2013Q1

REPORT INFORMATION
  Report Type: Spontaneous
  Country: US (occurrence: US)
  Receive Date: 20130125
  Receipt Date: 20130125
  Transmission Date: 20140127
  Serious: No
  Sender: FDA-Public Use
  Company Number: US-ASTRAZENECA-2010SE29894

PATIENT
  Age: 59 Year
  Sex: Female
  Weight: 71.2 kg

DRUGS (6)
  1. ARIMIDEX [Suspect]
     Indication: BREAST CANCER
     Route: 048
     Dates: start: 201001
  2. ZESTRIL [Suspect]
     Route: 048
  3. HERCEPTIN [Suspect]
     Indication: BREAST CANCER
     Route: 065
  4. LISINOPRIL [Concomitant]
     Indication: HYPERTENSION
  5. ASA [Concomitant]
  6. VIT D [Concomitant]

REACTIONS (8)
  - Back pain [Not Recovered/Not Resolved]
  - Gait disturbance [Recovered/Resolved]
  - Hypoaesthesia [Recovered/Resolved]
  - Pain in extremity [Recovered/Resolved]
  - Urinary tract infection [Recovered/Resolved]
  - Fatigue [Not Recovered/Not Resolved]
  - Alopecia [Not Recovered/Not Resolved]
  - Trigger finger [Recovered/Resolved]
